FAERS Safety Report 7350051-2 (Version None)
Quarter: 2011Q1

REPORT INFORMATION
  Report Type: 
  Country: None (occurrence: None)
  Receive Date: 20110309
  Receipt Date: 20110309
  Transmission Date: 20110831
  Serious: Yes (Other)
  Sender: FDA-Public Use
  Company Number: None

PATIENT
  Sex: Female
  Weight: 88.4514 kg

DRUGS (1)
  1. TORSEMIDE [Suspect]
     Indication: POLYURIA
     Dosage: 20 MG 1 DAILY ORAL
     Route: 048
     Dates: start: 20101001, end: 20110201

REACTIONS (2)
  - RASH GENERALISED [None]
  - PRODUCT SUBSTITUTION ISSUE [None]
